FAERS Safety Report 18890825 (Version 1)
Quarter: 2021Q1

REPORT INFORMATION
  Report Type: Spontaneous
  Country: PL (occurrence: PL)
  Receive Date: 20210215
  Receipt Date: 20210215
  Transmission Date: 20210420
  Serious: Yes (Hospitalization, Other)
  Sender: FDA-Public Use
  Company Number: PL-B.I. PHARMACEUTICALS,INC./RIDGEFIELD-2021-BI-081618

PATIENT
  Age: 86 Year
  Sex: Male
  Weight: 78 kg

DRUGS (5)
  1. BETO ZK [Concomitant]
     Active Substance: METOPROLOL SUCCINATE
     Indication: PRODUCT USED FOR UNKNOWN INDICATION
  2. PRESTARIUM [PERINDOPRIL] [Concomitant]
     Indication: PRODUCT USED FOR UNKNOWN INDICATION
  3. TULIP [SIMVASTATIN] [Concomitant]
     Indication: PRODUCT USED FOR UNKNOWN INDICATION
  4. PRADAXA [Suspect]
     Active Substance: DABIGATRAN ETEXILATE MESYLATE
     Indication: ATRIAL FIBRILLATION
     Route: 048
     Dates: start: 20190910, end: 20210206
  5. DALFAZ UNO [Concomitant]
     Indication: PRODUCT USED FOR UNKNOWN INDICATION

REACTIONS (4)
  - Subarachnoid haemorrhage [Unknown]
  - Injury [Unknown]
  - Fall [Unknown]
  - Syncope [Unknown]

NARRATIVE: CASE EVENT DATE: 20210206
